FAERS Safety Report 4886481-8 (Version None)
Quarter: 2006Q1

REPORT INFORMATION
  Report Type: 
  Country: None (occurrence: None)
  Receive Date: 20060120
  Receipt Date: 20051201
  Transmission Date: 20060701
  Serious: Yes (Death, Life-Threatening, Hospitalization)
  Sender: FDA-Public Use
  Company Number: DE-MERCK-0512DEU00005

PATIENT
  Age: 79 Year
  Sex: Male

DRUGS (3)
  1. PRIMAXIN [Suspect]
     Indication: INTERVERTEBRAL DISCITIS
     Route: 041
     Dates: start: 20051101, end: 20051203
  2. ANTIMICROBIAL (UNSPECIFIED) [Concomitant]
     Route: 065
     Dates: end: 20051101
  3. PIPERACILLIN SODIUM [Concomitant]
     Route: 065

REACTIONS (3)
  - PANCYTOPENIA [None]
  - SEPSIS [None]
  - THROMBOCYTOPENIA [None]
